FAERS Safety Report 9286429 (Version 2)
Quarter: 2013Q2

REPORT INFORMATION
  Report Type: Spontaneous
  Country: JP (occurrence: JP)
  Receive Date: 20130513
  Receipt Date: 20130626
  Transmission Date: 20140414
  Serious: Yes (Other)
  Sender: FDA-Public Use
  Company Number: PHHY2013JP041331

PATIENT
  Sex: Female

DRUGS (2)
  1. CICLOSPORIN [Suspect]
     Indication: MIXED CONNECTIVE TISSUE DISEASE
     Dosage: 50 MG/DAY
     Route: 048
  2. PREDNISOLONE [Suspect]
     Indication: MIXED CONNECTIVE TISSUE DISEASE
     Dosage: 6.125 MG/DAY
     Route: 048

REACTIONS (2)
  - Obstructed labour [Unknown]
  - Maternal exposure during pregnancy [Unknown]
